FAERS Safety Report 5008109-9 (Version None)
Quarter: 2006Q2

REPORT INFORMATION
  Report Type: 
  Country: None (occurrence: None)
  Receive Date: 20060405
  Receipt Date: 20051227
  Transmission Date: 20061013
  Serious: Yes (Hospitalization)
  Sender: FDA-Public Use
  Company Number: 006313

PATIENT
  Age: 40 Year
  Sex: Female
  Weight: 56.7 kg

DRUGS (1)
  1. SEASONALE [Suspect]
     Indication: ENDOMETRIOSIS
     Dosage: 1 TABLET, QD, ORAL
     Route: 048
     Dates: start: 20041101, end: 20050901

REACTIONS (1)
  - DEEP VEIN THROMBOSIS [None]
